FAERS Safety Report 5340330-2 (Version None)
Quarter: 2007Q2

REPORT INFORMATION
  Report Type: 
  Country: None (occurrence: None)
  Receive Date: 20070531
  Receipt Date: 20070525
  Transmission Date: 20071010
  Serious: Yes (Hospitalization)
  Sender: FDA-Public Use
  Company Number: US-MERCK-0705USA05236

PATIENT
  Age: 77 Year
  Sex: Male

DRUGS (4)
  1. ZOCOR [Suspect]
     Indication: BLOOD CHOLESTEROL
     Route: 048
     Dates: end: 20070201
  2. ZOCOR [Suspect]
     Route: 048
     Dates: start: 20070523, end: 20070523
  3. COUMADIN [Concomitant]
     Route: 065
  4. SOTALOL HYDROCHLORIDE [Concomitant]
     Route: 065

REACTIONS (2)
  - HAEMATEMESIS [None]
  - VOMITING [None]
